FAERS Safety Report 18106315 (Version 1)
Quarter: 2020Q3

REPORT INFORMATION
  Report Type: Report from Study
  Country: US (occurrence: US)
  Receive Date: 20200803
  Receipt Date: 20200803
  Transmission Date: 20201104
  Serious: Yes (Other)
  Sender: FDA-Public Use
  Company Number: US-IMMUNOMEDICS, INC.-2020IMMU000468

PATIENT
  Age: 48 Year
  Sex: Female
  Weight: 74.4 kg

DRUGS (2)
  1. SACITUZUMAB GOVITECAN. [Suspect]
     Active Substance: SACITUZUMAB GOVITECAN
     Dosage: 504.7 MG, DAY 1 AND 8 OF 21 DAY CYCLE
     Route: 042
     Dates: start: 20200421, end: 20200421
  2. SACITUZUMAB GOVITECAN. [Suspect]
     Active Substance: SACITUZUMAB GOVITECAN
     Indication: TRIPLE NEGATIVE BREAST CANCER
     Dosage: 721 MG, DAY 1 AND 8 OF 21 DAY CYCLE
     Route: 042
     Dates: start: 20200401, end: 20200401

REACTIONS (8)
  - White blood cell count decreased [Unknown]
  - Dehydration [Unknown]
  - Asthenia [Unknown]
  - Platelet count decreased [Unknown]
  - Vomiting [Unknown]
  - Diarrhoea [Unknown]
  - Anaemia [Unknown]
  - Nausea [Unknown]

NARRATIVE: CASE EVENT DATE: 20200408
